FAERS Safety Report 11154663 (Version 2)
Quarter: 2017Q2

REPORT INFORMATION
  Report Type: Spontaneous
  Country: DE (occurrence: DE)
  Receive Date: 20150602
  Receipt Date: 20170411
  Transmission Date: 20170829
  Serious: Yes (Hospitalization, Other)
  Sender: FDA-Public Use
  Company Number: DE-AMGEN-DEUSP2015051983

PATIENT
  Age: 63 Year
  Sex: Male

DRUGS (3)
  1. PROCORALAN [Suspect]
     Active Substance: IVABRADINE
     Dosage: 10 MG, QD
     Route: 048
     Dates: start: 20150516, end: 20150522
  2. PROCORALAN [Suspect]
     Active Substance: IVABRADINE
     Indication: PRODUCT USED FOR UNKNOWN INDICATION
     Dosage: 5 MG, BID
     Route: 048
     Dates: end: 20150512
  3. PROCORALAN [Suspect]
     Active Substance: IVABRADINE
     Dosage: 15 MG, QD
     Route: 048
     Dates: start: 20150513, end: 20150516

REACTIONS (4)
  - Loss of consciousness [Recovered/Resolved]
  - Photopsia [Recovered/Resolved]
  - Seizure [Recovered/Resolved]
  - Cardiac failure [Recovered/Resolved]

NARRATIVE: CASE EVENT DATE: 20150505
